FAERS Safety Report 17925139 (Version 1)
Quarter: 2020Q2

REPORT INFORMATION
  Report Type: Report from Study
  Country: UA (occurrence: UA)
  Receive Date: 20200622
  Receipt Date: 20200622
  Transmission Date: 20200714
  Serious: Yes (Hospitalization)
  Sender: FDA-Public Use
  Company Number: UA-JNJFOC-20200618723

PATIENT
  Age: 33 Year
  Sex: Female
  Weight: 92.3 kg

DRUGS (7)
  1. FLUCONAZOLE. [Concomitant]
     Active Substance: FLUCONAZOLE
     Indication: CHRONIC SINUSITIS
  2. MESALAZINE [Concomitant]
     Active Substance: MESALAMINE
     Indication: COLITIS ULCERATIVE
     Route: 065
     Dates: start: 20190226
  3. LEVOFLOXACIN. [Concomitant]
     Active Substance: LEVOFLOXACIN
     Indication: CHRONIC SINUSITIS
  4. FLUCONAZOLE. [Concomitant]
     Active Substance: FLUCONAZOLE
     Indication: TOOTH FRACTURE
     Route: 048
     Dates: start: 20200529, end: 20200529
  5. YARINA PLUS [Concomitant]
     Active Substance: DROSPIRENONE\ETHINYL ESTRADIOL\LEVOMEFOLATE CALCIUM
     Indication: CONTRACEPTION
     Route: 065
     Dates: start: 20191003
  6. LEVOFLOXACIN. [Concomitant]
     Active Substance: LEVOFLOXACIN
     Indication: TOOTH FRACTURE
     Route: 048
     Dates: start: 20200529, end: 20200607
  7. GOLIMUMAB [Suspect]
     Active Substance: GOLIMUMAB
     Indication: COLITIS ULCERATIVE
     Route: 058
     Dates: start: 20191029, end: 20200527

REACTIONS (1)
  - Chronic sinusitis [Not Recovered/Not Resolved]

NARRATIVE: CASE EVENT DATE: 20200612
